FAERS Safety Report 11244843 (Version 1)
Quarter: 2015Q3

REPORT INFORMATION
  Report Type: Spontaneous
  Country: US (occurrence: US)
  Receive Date: 20150707
  Receipt Date: 20150707
  Transmission Date: 20151125
  Serious: No
  Sender: FDA-Public Use
  Company Number: US-TARO-2015TAR00417

PATIENT
  Age: 25 Year
  Sex: Female

DRUGS (1)
  1. ACETAZOLAMIDE TABLETS 250 MG [Suspect]
     Active Substance: ACETAZOLAMIDE
     Indication: INTRAOCULAR PRESSURE TEST
     Dosage: 500 MG, 2X/DAY
     Route: 048
     Dates: start: 20150424, end: 2015

REACTIONS (1)
  - Drug ineffective [Recovered/Resolved]

NARRATIVE: CASE EVENT DATE: 20150424
